FAERS Safety Report 15925952 (Version 1)
Quarter: 2019Q1

REPORT INFORMATION
  Report Type: Other
  Country: FR (occurrence: FR)
  Receive Date: 20190206
  Receipt Date: 20190206
  Transmission Date: 20190417
  Serious: Yes (Hospitalization)
  Sender: FDA-Public Use
  Company Number: FR-APOTEX-2019AP007267

PATIENT
  Age: 0 Day

DRUGS (2)
  1. PAROXETINE. [Suspect]
     Active Substance: PAROXETINE
     Indication: PRODUCT USED FOR UNKNOWN INDICATION
     Dosage: 30 MG, QD
     Route: 064
     Dates: start: 201804, end: 20190104
  2. STILNOX [Suspect]
     Active Substance: ZOLPIDEM TARTRATE
     Indication: INSOMNIA
     Dosage: UNK
     Route: 064
     Dates: start: 201804, end: 20190103

REACTIONS (4)
  - Foetal exposure during pregnancy [Unknown]
  - Somnolence [Recovering/Resolving]
  - Hypotonia [Recovering/Resolving]
  - Poor sucking reflex [Recovering/Resolving]

NARRATIVE: CASE EVENT DATE: 20190104
